FAERS Safety Report 6824594-1 (Version None)
Quarter: 2010Q3

REPORT INFORMATION
  Report Type: 
  Country: None (occurrence: None)
  Receive Date: 20100708
  Receipt Date: 20061106
  Transmission Date: 20110219
  Serious: No
  Sender: FDA-Public Use
  Company Number: US-PFIZER INC-2006136804

PATIENT
  Sex: Male
  Weight: 158.76 kg

DRUGS (4)
  1. CHANTIX [Suspect]
     Indication: SMOKING CESSATION THERAPY
     Dates: start: 20061016
  2. LIPITOR [Concomitant]
  3. ALTACE [Concomitant]
     Indication: HYPERTENSION
  4. GLUCOPHAGE [Concomitant]

REACTIONS (1)
  - SLEEP DISORDER [None]
